FAERS Safety Report 17705990 (Version 2)
Quarter: 2020Q2

REPORT INFORMATION
  Report Type: Spontaneous
  Country: US (occurrence: US)
  Receive Date: 20200424
  Receipt Date: 20200628
  Transmission Date: 20200714
  Serious: No
  Sender: FDA-Public Use
  Company Number: US-ASTRAZENECA-2020SE47202

PATIENT
  Sex: Male
  Weight: 85.7 kg

DRUGS (3)
  1. PULMICORT FLEXHALER [Suspect]
     Active Substance: BUDESONIDE
     Indication: BRONCHOSPASM
     Dosage: 180 MCG, 2 PUFFS, TWO TIMES A DAY
     Route: 055
     Dates: start: 20200328
  2. SYMBICORT [Suspect]
     Active Substance: BUDESONIDE\FORMOTEROL FUMARATE DIHYDRATE
     Indication: ASTHMA
     Dosage: 180UG, TWO TIMES A DAY
     Route: 055
     Dates: start: 20200328
  3. PULMICORT FLEXHALER [Suspect]
     Active Substance: BUDESONIDE
     Indication: ASTHMA
     Dosage: 180 MCG, 2 PUFFS, TWO TIMES A DAY
     Route: 055
     Dates: start: 20200328

REACTIONS (5)
  - Dysgeusia [Unknown]
  - Device issue [Unknown]
  - Cough [Not Recovered/Not Resolved]
  - Device ineffective [Unknown]
  - Device difficult to use [Unknown]
